FAERS Safety Report 20297679 (Version 1)
Quarter: 2022Q1

REPORT INFORMATION
  Report Type: Spontaneous
  Country: US (occurrence: US)
  Receive Date: 20220105
  Receipt Date: 20220105
  Transmission Date: 20220423
  Serious: Yes (Hospitalization)
  Sender: FDA-Public Use
  Company Number: US-drreddys-LIT/USA/22/0145590

PATIENT
  Age: 45 Year
  Sex: Female

DRUGS (7)
  1. QUETIAPINE FUMARATE [Suspect]
     Active Substance: QUETIAPINE FUMARATE
     Indication: Psychomotor hyperactivity
  2. QUETIAPINE FUMARATE [Suspect]
     Active Substance: QUETIAPINE FUMARATE
     Dosage: GRADUALLY INCREASED TO 2MG TWICE DAILY
  3. LORAZEPAM [Suspect]
     Active Substance: LORAZEPAM
     Indication: Psychomotor hyperactivity
  4. LORAZEPAM [Suspect]
     Active Substance: LORAZEPAM
     Dosage: THE DOSAGE WAS GRADUALLY INCREASED DUE TO BREAKTHROUGH AGITATION, IMPULSIVITY AND AGGRESSION.
  5. CHLORPROMAZINE [Suspect]
     Active Substance: CHLORPROMAZINE
     Indication: Antipsychotic therapy
     Route: 030
  6. ZOLPIDEM [Suspect]
     Active Substance: ZOLPIDEM TARTRATE
     Indication: Psychomotor hyperactivity
  7. HALOPERIDOL [Suspect]
     Active Substance: HALOPERIDOL
     Indication: Psychomotor hyperactivity
     Route: 030

REACTIONS (1)
  - Catatonia [Recovering/Resolving]
